FAERS Safety Report 23270416 (Version 1)
Quarter: 2023Q4

REPORT INFORMATION
  Report Type: Spontaneous
  Country: US (occurrence: US)
  Receive Date: 20231207
  Receipt Date: 20231207
  Transmission Date: 20240110
  Serious: No
  Sender: FDA-Public Use
  Company Number: US-002147023-NVSC2023US260079

PATIENT
  Sex: Female

DRUGS (1)
  1. TAFINLAR [Suspect]
     Active Substance: DABRAFENIB MESYLATE
     Indication: Thyroid cancer
     Dosage: 100 MG, BID
     Route: 048
     Dates: start: 202310

REACTIONS (9)
  - Pain [Unknown]
  - Oedema [Unknown]
  - Swelling [Unknown]
  - Fatigue [Unknown]
  - Constipation [Unknown]
  - Bowel movement irregularity [Unknown]
  - Feeling abnormal [Unknown]
  - Faeces soft [Unknown]
  - Product use in unapproved indication [Unknown]
